FAERS Safety Report 6575103-6 (Version None)
Quarter: 2010Q1

REPORT INFORMATION
  Report Type: 
  Country: None (occurrence: None)
  Receive Date: 20100209
  Receipt Date: 20100202
  Transmission Date: 20100710
  Serious: Yes (Other)
  Sender: FDA-Public Use
  Company Number: CA-AMGEN-QUU380247

PATIENT
  Sex: Female
  Weight: 65.8 kg

DRUGS (9)
  1. ENBREL [Suspect]
     Indication: RHEUMATOID ARTHRITIS
     Route: 058
     Dates: start: 20091204, end: 20091204
  2. UNSPECIFIED MEDICATION [Concomitant]
  3. CALCIUM [Concomitant]
  4. VITAMIN D [Concomitant]
  5. FOLIC ACID [Concomitant]
  6. CELEBREX [Concomitant]
     Dates: end: 20091204
  7. REMICADE [Concomitant]
     Route: 042
     Dates: start: 20081008
  8. VITAMIN B-12 [Concomitant]
     Route: 030
     Dates: start: 20081008
  9. TRIPHASIL-21 [Concomitant]

REACTIONS (10)
  - DEPRESSED MOOD [None]
  - DYSPHONIA [None]
  - DYSPNOEA [None]
  - HEART RATE INCREASED [None]
  - LIP SWELLING [None]
  - ORAL HERPES [None]
  - PHARYNGEAL OEDEMA [None]
  - PHARYNGITIS [None]
  - PULMONARY EMBOLISM [None]
  - TONGUE DISORDER [None]
